FAERS Safety Report 11773691 (Version 1)
Quarter: 2015Q4

REPORT INFORMATION
  Report Type: Spontaneous
  Country: US (occurrence: US)
  Receive Date: 20151124
  Receipt Date: 20151124
  Transmission Date: 20160304
  Serious: Yes (Other)
  Sender: FDA-Public Use
  Company Number: US-BAYER-2015-466943

PATIENT
  Sex: Male

DRUGS (2)
  1. NEXAVAR [Suspect]
     Active Substance: SORAFENIB
     Indication: HEPATOCELLULAR CARCINOMA
     Dosage: 600 MG, QD (400 MG IN THE MORNING AND 200 MG AT NIGHT)
     Route: 048
     Dates: start: 201508
  2. NEXAVAR [Suspect]
     Active Substance: SORAFENIB
     Indication: HEPATOCELLULAR CARCINOMA
     Dosage: 400 MG, BID
     Route: 048
     Dates: end: 2015

REACTIONS (3)
  - Palmar-plantar erythrodysaesthesia syndrome [None]
  - Pain in extremity [None]
  - Hepatocellular carcinoma [None]

NARRATIVE: CASE EVENT DATE: 201508
